FAERS Safety Report 20086275 (Version 1)
Quarter: 2021Q4

REPORT INFORMATION
  Report Type: Spontaneous
  Country: US (occurrence: US)
  Receive Date: 20211118
  Receipt Date: 20211118
  Transmission Date: 20220303
  Serious: No
  Sender: FDA-Public Use
  Company Number: US-GALDERMA-US2021018149

PATIENT

DRUGS (11)
  1. DIFFERIN GEL [Suspect]
     Active Substance: ADAPALENE
     Indication: Acne
     Dosage: 1 DOSAGE FORM, QD, USUALLY EVERY NIGHT
     Route: 061
  2. DIFFERIN GEL [Suspect]
     Active Substance: ADAPALENE
     Dosage: 1 DOSAGE FORM, QOD SOMETIMES EVERY OTHER DAY
     Route: 061
  3. KLONOPIN [Concomitant]
     Active Substance: CLONAZEPAM
     Indication: Autism spectrum disorder
     Dosage: UNKNOWN, FOR YEARS
     Route: 065
  4. RISPERDAL [Concomitant]
     Active Substance: RISPERIDONE
     Indication: Autism spectrum disorder
     Dosage: UNKNOWN, FOR YEARS
     Route: 065
  5. GUANFACINE [Concomitant]
     Active Substance: GUANFACINE
     Indication: Autism spectrum disorder
     Dosage: UNKNOWN, FOR YEARS
     Route: 065
  6. FAMOTIDINE [Concomitant]
     Active Substance: FAMOTIDINE
     Indication: Gastrooesophageal reflux disease
     Dosage: UNKNOWN, FOR YEARS
     Route: 065
  7. SINGULAIR [Concomitant]
     Active Substance: MONTELUKAST SODIUM
     Indication: Seasonal allergy
     Dosage: UNKNOWN, FOR YEARS
     Route: 065
  8. FLONASE [Concomitant]
     Active Substance: FLUTICASONE PROPIONATE
     Indication: Seasonal allergy
     Dosage: UNKNOWN, FOR YEARS
     Route: 065
  9. AZELASTINE [Concomitant]
     Active Substance: AZELASTINE
     Indication: Seasonal allergy
     Dosage: UNKNOWN, FOR YEARS
     Route: 065
  10. COSMETICS [Concomitant]
     Active Substance: COSMETICS
     Indication: Seborrhoea
     Dosage: UNKNOWN AMOUNT OF TIME
     Route: 061
  11. COSMETICS [Concomitant]
     Active Substance: COSMETICS
     Indication: Acne

REACTIONS (5)
  - Acne [Not Recovered/Not Resolved]
  - Erythema [Not Recovered/Not Resolved]
  - Pruritus [Not Recovered/Not Resolved]
  - Inappropriate schedule of product administration [Recovered/Resolved]
  - Underdose [Recovered/Resolved]
